FAERS Safety Report 23553142 (Version 1)
Quarter: 2024Q1

REPORT INFORMATION
  Report Type: Spontaneous
  Country: US (occurrence: None)
  Receive Date: 20240221
  Receipt Date: 20240221
  Transmission Date: 20240409
  Serious: Yes (Other)
  Sender: FDA-Public Use
  Company Number: None

PATIENT
  Age: 33 Year
  Sex: Female
  Weight: 63 kg

DRUGS (1)
  1. CITALOPRAM [Suspect]
     Active Substance: CITALOPRAM HYDROBROMIDE
     Indication: Depression
     Dates: start: 20230524, end: 20230912

REACTIONS (5)
  - Sexual dysfunction [None]
  - Libido decreased [None]
  - Anorgasmia [None]
  - Orgasm abnormal [None]
  - Flat affect [None]

NARRATIVE: CASE EVENT DATE: 20230601
